FAERS Safety Report 8784695 (Version 1)
Quarter: 2012Q4

REPORT INFORMATION
  Report Type: 
  Country: CO (occurrence: CO)
  Receive Date: 20120914
  Receipt Date: 20120914
  Transmission Date: 20130627
  Serious: Yes (Other)
  Sender: FDA-Public Use
  Company Number: CO-PFIZER INC-2012224139

PATIENT
  Age: 66 Year
  Sex: Female

DRUGS (2)
  1. DETRUSITOL SR [Suspect]
     Dosage: 4 mg, 1x/day
     Route: 048
     Dates: start: 201203
  2. HYPERLIPEN [Concomitant]
     Dosage: UNK

REACTIONS (2)
  - Dengue fever [Recovering/Resolving]
  - Influenza [Recovering/Resolving]
